FAERS Safety Report 5075473-4 (Version None)
Quarter: 2006Q3

REPORT INFORMATION
  Report Type: 
  Country: None (occurrence: None)
  Receive Date: 20060809
  Receipt Date: 20060808
  Transmission Date: 20061208
  Serious: Yes (Other)
  Sender: FDA-Public Use
  Company Number: US-GLAXOSMITHKLINE-A0615748A

PATIENT
  Age: 93 Year
  Sex: Female

DRUGS (6)
  1. DEBROX DROPS [Suspect]
     Route: 001
     Dates: start: 20060807, end: 20060808
  2. COZAAR [Concomitant]
  3. LASIX [Concomitant]
  4. KLOTRIX [Concomitant]
  5. PREMARIN [Concomitant]
  6. ASPIRIN [Concomitant]

REACTIONS (1)
  - DEAFNESS [None]
